FAERS Safety Report 8127727-2 (Version None)
Quarter: 2012Q1

REPORT INFORMATION
  Report Type: 
  Country: None (occurrence: None)
  Receive Date: 20120210
  Receipt Date: 20120208
  Transmission Date: 20120608
  Serious: Yes (Hospitalization)
  Sender: FDA-Public Use
  Company Number: IT-PFIZER INC-2012025457

PATIENT
  Age: 81 Year
  Sex: Female

DRUGS (5)
  1. SIMVASTATIN [Concomitant]
  2. ESCITALOPRAM [Suspect]
     Indication: ANXIETY
     Dosage: 1 DF, 1X/DAY
     Route: 048
     Dates: start: 20110901
  3. LANSOPRAZOLE [Concomitant]
  4. LYRICA [Suspect]
     Indication: NEURALGIA
     Dosage: 2 DF, 1X/DAY
     Route: 048
     Dates: start: 20110901
  5. MICROSER [Suspect]
     Indication: VERTIGO
     Dosage: 2 DF, 1X/DAY
     Route: 048
     Dates: start: 20110901, end: 20111001

REACTIONS (4)
  - LOSS OF CONSCIOUSNESS [None]
  - PRESYNCOPE [None]
  - HYPERHIDROSIS [None]
  - FEELING HOT [None]
